FAERS Safety Report 5277914-6 (Version None)
Quarter: 2007Q1

REPORT INFORMATION
  Report Type: 
  Country: None (occurrence: None)
  Receive Date: 20070327
  Receipt Date: 20070320
  Transmission Date: 20070707
  Serious: Yes (Hospitalization)
  Sender: FDA-Public Use
  Company Number: US-PFIZER INC-2007022577

PATIENT
  Sex: Female
  Weight: 28.1 kg

DRUGS (3)
  1. DIFLUCAN [Suspect]
     Indication: FUNGAL INFECTION
     Route: 048
  2. NEURONTIN [Concomitant]
  3. INDERAL [Concomitant]

REACTIONS (3)
  - DEHYDRATION [None]
  - SOMNOLENCE [None]
  - WHITE BLOOD CELL COUNT INCREASED [None]
